FAERS Safety Report 15160475 (Version 1)
Quarter: 2018Q3

REPORT INFORMATION
  Report Type: Spontaneous
  Country: MX (occurrence: MX)
  Receive Date: 20180718
  Receipt Date: 20180718
  Transmission Date: 20181010
  Serious: Yes (Other)
  Sender: FDA-Public Use
  Company Number: MX-SA-2018SA182745

PATIENT
  Age: 48 Year
  Sex: Female
  Weight: 58 kg

DRUGS (2)
  1. ARAVA [Suspect]
     Active Substance: LEFLUNOMIDE
     Indication: RHEUMATOID ARTHRITIS
     Dosage: 1 DF, QD
     Route: 048
     Dates: start: 2012
  2. ARAVA [Suspect]
     Active Substance: LEFLUNOMIDE
     Dosage: 100 MG
     Route: 048

REACTIONS (1)
  - Sjogren^s syndrome [Not Recovered/Not Resolved]

NARRATIVE: CASE EVENT DATE: 2015
